FAERS Safety Report 19001591 (Version 2)
Quarter: 2021Q3

REPORT INFORMATION
  Report Type: Spontaneous
  Country: US (occurrence: US)
  Receive Date: 20210312
  Receipt Date: 20210914
  Transmission Date: 20211014
  Serious: No
  Sender: FDA-Public Use
  Company Number: US-FARMAPROD-202010-1434

PATIENT
  Sex: Male
  Weight: 78.27 kg

DRUGS (1)
  1. OXERVATE [Suspect]
     Active Substance: CENEGERMIN-BKBJ
     Indication: ULCERATIVE KERATITIS
     Route: 047
     Dates: start: 20201019, end: 20201202

REACTIONS (5)
  - Mydriasis [Unknown]
  - Eye pain [Unknown]
  - Ocular discomfort [Unknown]
  - Photophobia [Unknown]
  - Intraocular pressure increased [Recovered/Resolved]
